FAERS Safety Report 10255715 (Version 1)
Quarter: 2014Q2

REPORT INFORMATION
  Report Type: Spontaneous
  Country: US (occurrence: US)
  Receive Date: 20140624
  Receipt Date: 20140624
  Transmission Date: 20141212
  Serious: No
  Sender: FDA-Public Use
  Company Number: US-TEVA-490236USA

PATIENT
  Age: 27 Year
  Sex: Female
  Weight: 53.12 kg

DRUGS (4)
  1. PARAGARD 380A [Suspect]
     Indication: CONTRACEPTION
     Route: 015
     Dates: start: 20140207, end: 20140616
  2. ADVAIR [Concomitant]
     Indication: ASTHMA
  3. SINGULAIR [Concomitant]
     Indication: ASTHMA
  4. VENTOLIN [Concomitant]
     Indication: ASTHMA

REACTIONS (1)
  - Device expulsion [Recovered/Resolved]
